FAERS Safety Report 17662839 (Version 1)
Quarter: 2020Q2

REPORT INFORMATION
  Report Type: Spontaneous
  Country: NL (occurrence: NL)
  Receive Date: 20200413
  Receipt Date: 20200413
  Transmission Date: 20200713
  Serious: Yes (Other)
  Sender: FDA-Public Use
  Company Number: NL-PERRIGO-20NL004758

PATIENT

DRUGS (1)
  1. PREVALIN DINATRIUMCROMOGLICAAT 20 MG/ML NEUSSPRAY [Suspect]
     Active Substance: CROMOLYN SODIUM
     Indication: SEASONAL ALLERGY
     Dosage: 1X SPRAY
     Route: 065
     Dates: start: 20200307, end: 20200307

REACTIONS (1)
  - Angioedema [Not Recovered/Not Resolved]

NARRATIVE: CASE EVENT DATE: 20200307
